FAERS Safety Report 6480224-2 (Version None)
Quarter: 2009Q4

REPORT INFORMATION
  Report Type: 
  Country: None (occurrence: None)
  Receive Date: 20091208
  Receipt Date: 20091129
  Transmission Date: 20100525
  Serious: Yes (Other)
  Sender: FDA-Public Use
  Company Number: US-AMGEN-QUU377258

PATIENT
  Sex: Male

DRUGS (2)
  1. ENBREL [Suspect]
     Indication: PSORIATIC ARTHROPATHY
     Route: 058
     Dates: start: 20091030
  2. ENBREL [Suspect]
     Indication: PSORIASIS

REACTIONS (3)
  - CHEST DISCOMFORT [None]
  - PRODUCTIVE COUGH [None]
  - SPUTUM ABNORMAL [None]
